FAERS Safety Report 24628929 (Version 1)
Quarter: 2024Q4

REPORT INFORMATION
  Report Type: Spontaneous
  Country: US (occurrence: US)
  Receive Date: 20241118
  Receipt Date: 20241118
  Transmission Date: 20250115
  Serious: No
  Sender: AUROBINDO
  Company Number: US-AUROBINDO-AUR-APL-2024-039018

PATIENT
  Sex: Female
  Weight: 72.575 kg

DRUGS (2)
  1. CLONAZEPAM [Suspect]
     Active Substance: CLONAZEPAM
     Indication: Panic attack
     Dosage: UNK
     Route: 065
     Dates: start: 20240513
  2. METOPROLOL [Concomitant]
     Active Substance: METOPROLOL
     Indication: Product used for unknown indication
     Dosage: UNK (ONE DAY)
     Route: 065

REACTIONS (9)
  - Diarrhoea [Not Recovered/Not Resolved]
  - Anxiety [Unknown]
  - Dyspepsia [Unknown]
  - Headache [Unknown]
  - Illness [Unknown]
  - Nervousness [Unknown]
  - Throat irritation [Unknown]
  - Therapeutic response changed [Unknown]
  - Product substitution issue [Unknown]
